FAERS Safety Report 15064930 (Version 1)
Quarter: 2018Q2

REPORT INFORMATION
  Report Type: Spontaneous
  Country: FR (occurrence: FR)
  Receive Date: 20180626
  Receipt Date: 20180626
  Transmission Date: 20180711
  Serious: Yes (Other)
  Sender: FDA-Public Use
  Company Number: FR-TEVA-2018-FR-914952

PATIENT
  Age: 63 Year
  Sex: Female
  Weight: 101 kg

DRUGS (13)
  1. RAMIPRIL. [Concomitant]
     Active Substance: RAMIPRIL
     Indication: HYPERTENSION
     Route: 048
  2. CODEINE [Concomitant]
     Active Substance: CODEINE
     Indication: PROCEDURAL PAIN
     Route: 048
     Dates: start: 20180322
  3. ACTISKENAN 10 MG, G?LULE [Concomitant]
     Active Substance: MORPHINE SULFATE
     Indication: PROCEDURAL PAIN
     Route: 048
     Dates: start: 20180322
  4. METFORMINE [Concomitant]
     Active Substance: METFORMIN HYDROCHLORIDE
     Indication: TYPE 2 DIABETES MELLITUS
     Route: 048
  5. TRULICITY 0,75 MG, SOLUTION INJECTABLE EN SERINGUE PR?REMPLIE [Concomitant]
     Indication: TYPE 2 DIABETES MELLITUS
     Route: 058
  6. PARACETAMOL [Concomitant]
     Active Substance: ACETAMINOPHEN
     Indication: PROCEDURAL PAIN
     Route: 048
     Dates: start: 20180322
  7. ZOPHREN 4 MG, COMPRIM? PELLICUL? [Concomitant]
     Indication: PROCEDURAL NAUSEA
     Route: 048
     Dates: start: 20180322
  8. LANSOPRAZOLE. [Suspect]
     Active Substance: LANSOPRAZOLE
     Indication: PRODUCT USED FOR UNKNOWN INDICATION
     Route: 048
     Dates: end: 20180416
  9. DOLIPRANE 500 MG, COMPRIM? [Concomitant]
     Indication: PROCEDURAL PAIN
     Route: 048
     Dates: start: 20180322
  10. LYRICA [Concomitant]
     Active Substance: PREGABALIN
     Indication: NEURALGIA
     Route: 048
  11. LOVENOX [Concomitant]
     Active Substance: ENOXAPARIN SODIUM
     Indication: THROMBOSIS PROPHYLAXIS
     Dosage: 4000 IU ANTI-XA / 0.4 ML
     Route: 058
     Dates: start: 20180322
  12. KARDEGIC [Concomitant]
     Active Substance: ASPIRIN DL-LYSINE
     Route: 048
  13. HUMALOG [Concomitant]
     Active Substance: INSULIN LISPRO
     Route: 058

REACTIONS (2)
  - Neutropenia [Recovered/Resolved]
  - Lymphopenia [Recovered/Resolved]
